FAERS Safety Report 14745848 (Version 1)
Quarter: 2018Q2

REPORT INFORMATION
  Report Type: Spontaneous
  Country: PK (occurrence: PK)
  Receive Date: 20180411
  Receipt Date: 20180411
  Transmission Date: 20180711
  Serious: Yes (Other)
  Sender: FDA-Public Use
  Company Number: PHHY2018PK062436

PATIENT

DRUGS (1)
  1. SIMULECT [Suspect]
     Active Substance: BASILIXIMAB
     Indication: TRANSPLANT
     Route: 065

REACTIONS (2)
  - Delayed graft function [Unknown]
  - Renal tubular necrosis [Unknown]
